FAERS Safety Report 20364196 (Version 1)
Quarter: 2022Q1

REPORT INFORMATION
  Report Type: Spontaneous
  Country: CA (occurrence: CA)
  Receive Date: 20220121
  Receipt Date: 20220121
  Transmission Date: 20220423
  Serious: Yes (Hospitalization, Other)
  Sender: FDA-Public Use
  Company Number: CA-TEVA-2022-CA-2001564

PATIENT
  Age: 47 Year
  Sex: Female

DRUGS (37)
  1. CYCLOBENZAPRINE [Interacting]
     Active Substance: CYCLOBENZAPRINE
     Indication: Pain
     Route: 048
  2. CYCLOBENZAPRINE [Interacting]
     Active Substance: CYCLOBENZAPRINE
     Route: 048
  3. FLUOXETINE HYDROCHLORIDE [Interacting]
     Active Substance: FLUOXETINE HYDROCHLORIDE
     Indication: Major depression
     Route: 048
  4. FLUOXETINE HYDROCHLORIDE [Interacting]
     Active Substance: FLUOXETINE HYDROCHLORIDE
     Route: 048
  5. GABAPENTIN [Interacting]
     Active Substance: GABAPENTIN
     Indication: Scoliosis
     Route: 065
  6. GABAPENTIN [Interacting]
     Active Substance: GABAPENTIN
     Indication: Pain
     Route: 065
  7. GABAPENTIN [Interacting]
     Active Substance: GABAPENTIN
     Route: 065
  8. GABAPENTIN [Interacting]
     Active Substance: GABAPENTIN
     Route: 065
  9. GABAPENTIN [Interacting]
     Active Substance: GABAPENTIN
     Route: 065
  10. GABAPENTIN [Interacting]
     Active Substance: GABAPENTIN
     Dosage: 2400 MILLIGRAM DAILY;
     Route: 048
  11. GABAPENTIN [Interacting]
     Active Substance: GABAPENTIN
     Dosage: 2400 MILLIGRAM DAILY;
     Route: 048
  12. GABAPENTIN [Interacting]
     Active Substance: GABAPENTIN
     Route: 065
  13. LORAZEPAM [Interacting]
     Active Substance: LORAZEPAM
     Indication: Withdrawal syndrome
     Route: 048
  14. LORAZEPAM [Interacting]
     Active Substance: LORAZEPAM
     Indication: Anxiety
     Route: 048
  15. LORAZEPAM [Interacting]
     Active Substance: LORAZEPAM
     Route: 048
  16. LORAZEPAM [Interacting]
     Active Substance: LORAZEPAM
     Route: 048
  17. QUETIAPINE FUMARATE [Interacting]
     Active Substance: QUETIAPINE FUMARATE
     Indication: Major depression
     Route: 065
  18. QUETIAPINE FUMARATE [Interacting]
     Active Substance: QUETIAPINE FUMARATE
     Route: 065
  19. RISPERIDONE [Interacting]
     Active Substance: RISPERIDONE
     Indication: Affective disorder
     Route: 048
  20. RISPERIDONE [Interacting]
     Active Substance: RISPERIDONE
     Route: 048
  21. DOXEPIN HYDROCHLORIDE [Interacting]
     Active Substance: DOXEPIN HYDROCHLORIDE
     Indication: Major depression
     Dosage: 50 MILLIGRAM DAILY;
     Route: 048
  22. DOXEPIN HYDROCHLORIDE [Interacting]
     Active Substance: DOXEPIN HYDROCHLORIDE
     Dosage: 50 MILLIGRAM DAILY;
     Route: 048
  23. METHADONE [Interacting]
     Active Substance: METHADONE HYDROCHLORIDE
     Indication: Drug use disorder
     Route: 048
  24. METHADONE [Interacting]
     Active Substance: METHADONE HYDROCHLORIDE
     Dosage: 75.0 MILLIGRAM
     Route: 048
  25. DIVALPROEX SODIUM [Interacting]
     Active Substance: DIVALPROEX SODIUM
     Indication: Affective disorder
     Route: 048
  26. DIVALPROEX SODIUM [Interacting]
     Active Substance: DIVALPROEX SODIUM
     Route: 048
  27. ATENOLOL [Concomitant]
     Active Substance: ATENOLOL
     Indication: Hypertension
     Route: 065
  28. ATENOLOL [Concomitant]
     Active Substance: ATENOLOL
     Route: 048
  29. ATENOLOL [Concomitant]
     Active Substance: ATENOLOL
     Route: 065
  30. ATENOLOL [Concomitant]
     Active Substance: ATENOLOL
     Route: 048
  31. ESTRADIOL [Concomitant]
     Active Substance: ESTRADIOL
     Indication: Endometriosis
     Route: 048
  32. ESTRADIOL [Concomitant]
     Active Substance: ESTRADIOL
     Route: 048
  33. FUROSEMIDE [Concomitant]
     Active Substance: FUROSEMIDE
     Indication: Oedema peripheral
     Route: 048
  34. FUROSEMIDE [Concomitant]
     Active Substance: FUROSEMIDE
     Route: 048
  35. NAPROXEN [Concomitant]
     Active Substance: NAPROXEN
     Indication: Pain
     Route: 048
  36. ALBUTEROL [Concomitant]
     Active Substance: ALBUTEROL
     Indication: Chronic obstructive pulmonary disease
     Route: 055
  37. TIOTROPIUM [Concomitant]
     Active Substance: TIOTROPIUM
     Indication: Chronic obstructive pulmonary disease
     Route: 055

REACTIONS (4)
  - Depressed level of consciousness [Unknown]
  - Respiratory depression [Unknown]
  - Toxicity to various agents [Unknown]
  - Drug interaction [Unknown]
